FAERS Safety Report 9122730 (Version 1)
Quarter: 2013Q1

REPORT INFORMATION
  Report Type: Report from Study
  Country: JP (occurrence: JP)
  Receive Date: 20130115
  Receipt Date: 20130115
  Transmission Date: 20140127
  Serious: Yes (Other)
  Sender: FDA-Public Use
  Company Number: JP-MERCK-1206USA02794

PATIENT
  Age: 41 Year
  Sex: Male

DRUGS (38)
  1. EMEND [Suspect]
     Indication: PROPHYLAXIS OF NAUSEA AND VOMITING
     Dosage: 125 MG, QD
     Route: 048
     Dates: start: 20110301, end: 20110301
  2. EMEND [Suspect]
     Dosage: 80 MG, QD
     Route: 048
     Dates: start: 20110302, end: 20110303
  3. EMEND [Suspect]
     Dosage: 125 MG, QD
     Route: 048
     Dates: start: 20110407, end: 20110407
  4. EMEND [Suspect]
     Dosage: 80 MG, QD
     Route: 048
     Dates: start: 20110408, end: 20110409
  5. EMEND [Suspect]
     Dosage: 125 MG, QD
     Route: 048
     Dates: start: 20110629, end: 20110629
  6. EMEND [Suspect]
     Dosage: 80 MG, QD
     Route: 048
     Dates: start: 20110630, end: 20110701
  7. DECADRON [Suspect]
     Indication: PROPHYLAXIS OF NAUSEA AND VOMITING
     Dosage: 33 MG, QD
     Route: 042
     Dates: start: 20110302, end: 20110304
  8. DECADRON [Suspect]
     Dosage: 33 MG, QD
     Route: 042
     Dates: start: 20110407, end: 20110409
  9. DECADRON [Suspect]
     Dosage: 13.2 MG, QD
     Route: 042
     Dates: start: 20110629, end: 20110701
  10. METHOTREXATE [Suspect]
     Indication: LYMPHOMA
     Dosage: 4100 MG, QD
     Route: 042
     Dates: start: 20110301, end: 20110301
  11. IFOMIDE [Suspect]
     Indication: LYMPHOMA
     Dosage: 3100 MG, QD
     Route: 042
     Dates: start: 20110302, end: 20110304
  12. IFOMIDE [Suspect]
     Dosage: 1500 MG, QD
     Route: 042
     Dates: start: 20110629, end: 20110701
  13. VEPESID [Suspect]
     Indication: LYMPHOMA
     Dosage: 200 MG, QD
     Route: 042
     Dates: start: 20110302, end: 20110304
  14. VEPESID [Suspect]
     Dosage: 200 MG, QD
     Route: 042
     Dates: start: 20110407, end: 20110409
  15. VEPESID [Suspect]
     Dosage: 90 MG, QD
     Route: 042
     Dates: start: 20110630, end: 20110701
  16. ENDOXAN [Suspect]
     Indication: LYMPHOMA
     Dosage: 2200 MG, QD
     Route: 042
     Dates: start: 20110407, end: 20110407
  17. CYLOCIDE [Suspect]
     Indication: LYMPHOMA
     Dosage: 4000 MG, QD
     Route: 042
     Dates: start: 20110408, end: 20110409
  18. CARBOPLATIN [Concomitant]
     Dates: start: 20110629, end: 20110629
  19. GRANISETRON [Concomitant]
     Dates: start: 20110301, end: 20110304
  20. GRANISETRON [Concomitant]
     Dates: start: 20110407, end: 20110409
  21. GRANISETRON [Concomitant]
     Dates: start: 20110629, end: 20110701
  22. PRIMPERAN [Concomitant]
     Dates: start: 20110302, end: 20110305
  23. URALYT [Concomitant]
     Dates: start: 20110301, end: 20110309
  24. URALYT [Concomitant]
     Dates: start: 20110407, end: 20110412
  25. ZYLORIC [Concomitant]
     Dates: start: 20110301, end: 20110309
  26. ZYLORIC [Concomitant]
     Dates: start: 20110407, end: 20110412
  27. MIYA-BM [Concomitant]
     Dates: start: 20110301, end: 20110309
  28. MIYA-BM [Concomitant]
     Dates: start: 20110407, end: 20110412
  29. MIYA-BM [Concomitant]
     Dates: start: 20110629, end: 20110711
  30. PEPCIDINE [Concomitant]
     Route: 048
     Dates: start: 20110301, end: 20110309
  31. MAGMITT [Concomitant]
     Dates: start: 20110304, end: 20110309
  32. MAGMITT [Concomitant]
     Dates: start: 20110407, end: 20110412
  33. ITRIZOLE [Concomitant]
     Dates: start: 20110407, end: 20110412
  34. ITRIZOLE [Concomitant]
     Dates: start: 20110629, end: 20110711
  35. BAKTAR [Concomitant]
     Dates: start: 20110407, end: 20110412
  36. BAKTAR [Concomitant]
     Dates: start: 20110629, end: 20110711
  37. OMEPRAL [Concomitant]
     Dates: start: 20110407, end: 20110412
  38. OMEPRAL [Concomitant]
     Dates: start: 20110629, end: 20110711

REACTIONS (10)
  - White blood cell count decreased [Unknown]
  - Agranulocytosis [Unknown]
  - Nausea [Unknown]
  - Hiccups [Unknown]
  - Pyrexia [Unknown]
  - Hyperglycaemia [Unknown]
  - Platelet count decreased [Unknown]
  - Depression [Unknown]
  - Cough [Unknown]
  - Cancer pain [Unknown]
